FAERS Safety Report 9388187 (Version 1)
Quarter: 2013Q3

REPORT INFORMATION
  Report Type: Spontaneous
  Country: FR (occurrence: FR)
  Receive Date: 20130708
  Receipt Date: 20130708
  Transmission Date: 20140515
  Serious: Yes (Other)
  Sender: FDA-Public Use
  Company Number: FR-BRISTOL-MYERS SQUIBB COMPANY-19054725

PATIENT
  Age: 86 Year
  Sex: Male

DRUGS (2)
  1. HYDREA CAPS 500 MG [Suspect]
     Indication: LEUKAEMIA
     Route: 048
     Dates: start: 201306
  2. NEURONTIN [Concomitant]

REACTIONS (3)
  - Respiratory failure [Unknown]
  - Muscle spasms [Unknown]
  - Sensory loss [Unknown]
